FAERS Safety Report 5600700-1 (Version None)
Quarter: 2008Q1

REPORT INFORMATION
  Report Type: 
  Country: None (occurrence: None)
  Receive Date: 20080123
  Receipt Date: 20080112
  Transmission Date: 20080703
  Serious: Yes (Other)
  Sender: FDA-Public Use
  Company Number: US-PFIZER INC-2008005697

PATIENT
  Sex: Male
  Weight: 97.5 kg

DRUGS (4)
  1. CHANTIX [Suspect]
     Indication: SMOKING CESSATION THERAPY
     Dates: start: 20080101, end: 20080112
  2. LIPITOR [Suspect]
     Indication: BLOOD CHOLESTEROL
  3. AMBIEN [Concomitant]
     Indication: SLEEP DISORDER
  4. SIMVASTATIN [Concomitant]

REACTIONS (3)
  - AGITATION [None]
  - CONFUSIONAL STATE [None]
  - MUSCULAR WEAKNESS [None]
